FAERS Safety Report 9827511 (Version 1)
Quarter: 2014Q1

REPORT INFORMATION
  Report Type: Spontaneous
  Country: US (occurrence: US)
  Receive Date: 20140117
  Receipt Date: 20140117
  Transmission Date: 20141002
  Serious: No
  Sender: FDA-Public Use
  Company Number: US-BIOGENIDEC-2014BI000704

PATIENT
  Sex: Female

DRUGS (7)
  1. TECFIDERA [Suspect]
     Indication: MULTIPLE SCLEROSIS
     Route: 048
  2. DIAZEPAM [Concomitant]
  3. COLACE [Concomitant]
  4. NEURONTIN [Concomitant]
  5. VITAMIN D [Concomitant]
  6. CYMBALTA [Concomitant]
  7. SYNTHROID [Concomitant]

REACTIONS (1)
  - Headache [Unknown]
